FAERS Safety Report 9746755 (Version 3)
Quarter: 2014Q1

REPORT INFORMATION
  Report Type: Spontaneous
  Country: US (occurrence: US)
  Receive Date: 20131211
  Receipt Date: 20140225
  Transmission Date: 20141002
  Serious: Yes (Other)
  Sender: FDA-Public Use
  Company Number: US-B.I. PHARMACEUTICALS,INC./RIDGEFIELD-2013-BI-40865BP

PATIENT
  Age: 83 Year
  Sex: Female
  Weight: 61 kg

DRUGS (16)
  1. SPIRIVA [Suspect]
     Indication: CHRONIC OBSTRUCTIVE PULMONARY DISEASE
     Dosage: 18 MCG
     Route: 055
     Dates: start: 2006
  2. WARFARIN [Concomitant]
     Indication: ATRIAL FIBRILLATION
     Route: 048
     Dates: start: 2002
  3. WARFARIN [Concomitant]
     Route: 048
  4. WARFARIN [Concomitant]
     Dosage: 3 MG
     Route: 065
  5. BACTROBAN OINTMENT 2% [Concomitant]
     Indication: NASAL DRYNESS
     Route: 065
  6. GLYCOLAX POWDER [Concomitant]
     Indication: ABDOMINAL DISCOMFORT
     Route: 065
  7. LEVOXYL [Concomitant]
     Indication: HYPOTHYROIDISM
     Route: 065
  8. LOSARTIN [Concomitant]
     Indication: CARDIAC DISORDER
     Dosage: 100 MG
     Route: 065
  9. CARVEDILOL [Concomitant]
     Indication: CARDIAC DISORDER
     Dosage: 3.125 MG
     Route: 065
  10. DIGOXIN [Concomitant]
     Indication: CARDIAC DISORDER
     Dosage: 0.125 MG
     Route: 065
  11. LASIX [Concomitant]
     Dosage: 40 MG
     Route: 065
  12. ALBUTEROL INHALATION [Concomitant]
     Indication: CHRONIC OBSTRUCTIVE PULMONARY DISEASE
     Route: 055
  13. RECLAST INJECTIONS [Concomitant]
     Indication: OSTEOPOROSIS PROPHYLAXIS
     Route: 065
  14. ALLEGRA [Concomitant]
     Indication: SEASONAL ALLERGY
     Route: 065
  15. FISH OIL [Concomitant]
     Indication: SUPPLEMENTATION THERAPY
     Route: 065
  16. MUCINEX [Concomitant]
     Indication: INCREASED UPPER AIRWAY SECRETION
     Route: 065

REACTIONS (15)
  - Cardiac failure [Not Recovered/Not Resolved]
  - Mitral valve disease [Not Recovered/Not Resolved]
  - Neuropathy peripheral [Not Recovered/Not Resolved]
  - Neuropathy peripheral [Not Recovered/Not Resolved]
  - Carpal tunnel syndrome [Not Recovered/Not Resolved]
  - Carpal tunnel syndrome [Not Recovered/Not Resolved]
  - Lymphoedema [Unknown]
  - Neuropathy peripheral [Unknown]
  - Dyspnoea [Unknown]
  - Barrett^s oesophagus [Unknown]
  - Herpes zoster [Not Recovered/Not Resolved]
  - Musculoskeletal chest pain [Unknown]
  - Insomnia [Unknown]
  - Product quality issue [Unknown]
  - Product quality issue [Unknown]
